FAERS Safety Report 13354375 (Version 1)
Quarter: 2017Q1

REPORT INFORMATION
  Report Type: Spontaneous
  Country: DE (occurrence: DE)
  Receive Date: 20170321
  Receipt Date: 20170321
  Transmission Date: 20170429
  Serious: Yes (Other)
  Sender: FDA-Public Use
  Company Number: PHHY2017DE040787

PATIENT
  Sex: Female

DRUGS (1)
  1. VOTRIENT [Suspect]
     Active Substance: PAZOPANIB HYDROCHLORIDE
     Indication: ENDOMETRIAL STROMAL SARCOMA
     Dosage: 400 MG, BID
     Route: 065
     Dates: start: 201605

REACTIONS (9)
  - Urinary incontinence [Unknown]
  - Nausea [Unknown]
  - Diarrhoea [Unknown]
  - Onychoclasis [Unknown]
  - Skin disorder [Unknown]
  - Haemangioma [Unknown]
  - Hair colour changes [Unknown]
  - Vesical fistula [Unknown]
  - Hypertension [Unknown]
